FAERS Safety Report 8897524 (Version 1)
Quarter: 2012Q4

REPORT INFORMATION
  Report Type: 
  Country: US (occurrence: US)
  Receive Date: 20121108
  Receipt Date: 20121108
  Transmission Date: 20130627
  Serious: Yes (Hospitalization, Other)
  Sender: FDA-Public Use
  Company Number: US-AMGEN-USASP2012012080

PATIENT
  Sex: Male

DRUGS (1)
  1. ENBREL [Suspect]
     Indication: PRODUCT USED FOR UNKNOWN INDICATION
     Dosage: 25 mg, 2 times/wk
     Dates: start: 201001

REACTIONS (3)
  - Osteomyelitis [Unknown]
  - Hypersensitivity [Unknown]
  - Rheumatoid arthritis [Unknown]
